FAERS Safety Report 16664091 (Version 1)
Quarter: 2019Q3

REPORT INFORMATION
  Report Type: Spontaneous
  Country: US (occurrence: US)
  Receive Date: 20190802
  Receipt Date: 20190802
  Transmission Date: 20191004
  Serious: No
  Sender: FDA-Public Use
  Company Number: US-BAUSCH-BL-2019-020441

PATIENT
  Age: 66 Year
  Sex: Female

DRUGS (4)
  1. EFUDEX [Suspect]
     Active Substance: FLUOROURACIL
     Route: 061
     Dates: start: 201902, end: 2019
  2. EFUDEX [Suspect]
     Active Substance: FLUOROURACIL
     Indication: PRECANCEROUS SKIN LESION
     Route: 061
  3. EFUDEX [Suspect]
     Active Substance: FLUOROURACIL
     Route: 061
     Dates: start: 201906
  4. VITAMINS [Concomitant]
     Active Substance: VITAMINS
     Indication: PRODUCT USED FOR UNKNOWN INDICATION

REACTIONS (4)
  - Skin irritation [Unknown]
  - Skin burning sensation [Unknown]
  - Product quality issue [Unknown]
  - Drug ineffective [Unknown]

NARRATIVE: CASE EVENT DATE: 201902
